FAERS Safety Report 12517767 (Version 1)
Quarter: 2016Q2

REPORT INFORMATION
  Report Type: Spontaneous
  Country: US (occurrence: US)
  Receive Date: 20160630
  Receipt Date: 20160630
  Transmission Date: 20160815
  Serious: Yes (Hospitalization)
  Sender: FDA-Public Use
  Company Number: US-SA-2016SA118516

PATIENT
  Age: 35 Year
  Sex: Male

DRUGS (1)
  1. ALEMTUZUMAB [Suspect]
     Active Substance: ALEMTUZUMAB
     Indication: AUTOIMMUNE NEUTROPENIA
     Dosage: FREQUENCY: 5DAYS A WEEK FOR TWO WEEKS
     Route: 058

REACTIONS (3)
  - Cellulitis [Unknown]
  - Pyrexia [Unknown]
  - Off label use [Unknown]
